FAERS Safety Report 6835204-1 (Version None)
Quarter: 2010Q3

REPORT INFORMATION
  Report Type: 
  Country: None (occurrence: None)
  Receive Date: 20100713
  Receipt Date: 20100629
  Transmission Date: 20110219
  Serious: Yes (Disabling)
  Sender: FDA-Public Use
  Company Number: JP-SHIRE-SPV1-2010-00740

PATIENT

DRUGS (10)
  1. LANTHANUM CARBONATE [Suspect]
     Indication: HYPERPHOSPHATAEMIA
     Dosage: 1500 MG, UNK
     Dates: start: 20091223
  2. LANTHANUM CARBONATE [Suspect]
     Dosage: 750 MG, UNK
     Dates: start: 20090729, end: 20091222
  3. DIOVAN [Concomitant]
     Dosage: 160 MG, UNK
     Route: 048
  4. NORVASC [Concomitant]
     Dosage: 10 MG, UNK
     Route: 048
  5. ARTIST [Concomitant]
     Dosage: 10 MG, UNK
     Route: 048
  6. ITOROL [Concomitant]
     Dosage: 40 MG, UNK
     Route: 048
  7. GASTER D [Concomitant]
     Dosage: 20 MG, UNK
     Route: 048
  8. NESP [Concomitant]
     Dosage: 40 UG, UNK
     Route: 042
  9. PHOSBLOCK [Concomitant]
     Indication: HYPERPHOSPHATAEMIA
     Dosage: 5250 MG, UNK
     Route: 048
  10. CALCIUM CARBONATE [Concomitant]
     Indication: HYPERPHOSPHATAEMIA
     Dosage: 4500 MG, UNK
     Route: 048

REACTIONS (3)
  - CERVICAL MYELOPATHY [None]
  - HYPERPARATHYROIDISM SECONDARY [None]
  - SPINAL COLUMN STENOSIS [None]
